FAERS Safety Report 5485644-0 (Version None)
Quarter: 2007Q4

REPORT INFORMATION
  Report Type: 
  Country: None (occurrence: None)
  Receive Date: 20071011
  Receipt Date: 20070925
  Transmission Date: 20080405
  Serious: Yes (Hospitalization)
  Sender: FDA-Public Use
  Company Number: 8026826

PATIENT
  Age: 6 Year
  Sex: Female
  Weight: 29.8 kg

DRUGS (4)
  1. KEPPRA [Suspect]
     Indication: PETIT MAL EPILEPSY
     Dosage: 250 MG 2/D PO
     Route: 048
     Dates: start: 20070710, end: 20070809
  2. EPILIM [Concomitant]
  3. LAMICTAL [Concomitant]
  4. AZACTAM [Suspect]

REACTIONS (7)
  - ANTICONVULSANT DRUG LEVEL BELOW THERAPEUTIC [None]
  - GRANULOCYTOPENIA [None]
  - INCREASED TENDENCY TO BRUISE [None]
  - NEUTROPENIA [None]
  - PETECHIAE [None]
  - THROMBOCYTOPENIA [None]
  - WHITE BLOOD CELL COUNT DECREASED [None]
